FAERS Safety Report 15704793 (Version 7)
Quarter: 2020Q3

REPORT INFORMATION
  Report Type: Spontaneous
  Country: US (occurrence: US)
  Receive Date: 20181210
  Receipt Date: 20200911
  Transmission Date: 20201102
  Serious: Yes (Other)
  Sender: FDA-Public Use
  Company Number: US-SA-2017SA035675

PATIENT

DRUGS (3)
  1. LANTUS [Suspect]
     Active Substance: INSULIN GLARGINE
     Indication: TYPE 1 DIABETES MELLITUS
     Dosage: 10 IU AM AND 12 IU PM,BID
     Route: 065
     Dates: start: 2007
  2. LANTUS [Suspect]
     Active Substance: INSULIN GLARGINE
     Dosage: 12IU AM AND 13 IU PM, BID
     Route: 065
  3. LANTUS [Suspect]
     Active Substance: INSULIN GLARGINE
     Dosage: 25 IU, BID
     Route: 065

REACTIONS (7)
  - Drug ineffective [Unknown]
  - Diabetes mellitus inadequate control [Unknown]
  - Therapeutic product effect incomplete [Unknown]
  - Inappropriate schedule of product administration [Unknown]
  - Cough [Unknown]
  - Hypersensitivity [Unknown]
  - Blood glucose increased [Unknown]

NARRATIVE: CASE EVENT DATE: 20170224
